FAERS Safety Report 13849073 (Version 1)
Quarter: 2017Q3

REPORT INFORMATION
  Report Type: Spontaneous
  Country: US (occurrence: US)
  Receive Date: 20170809
  Receipt Date: 20170809
  Transmission Date: 20171127
  Serious: Yes (Life-Threatening, Hospitalization)
  Sender: FDA-Public Use
  Company Number: None

PATIENT
  Sex: Male
  Weight: 108.96 kg

DRUGS (17)
  1. LOSARTIN [Concomitant]
     Active Substance: LOSARTAN
  2. LANTUS [Concomitant]
     Active Substance: INSULIN GLARGINE
  3. TAMSULOSIN [Concomitant]
     Active Substance: TAMSULOSIN
  4. NOVOLOG [Concomitant]
     Active Substance: INSULIN ASPART
  5. CARVEDILOL. [Concomitant]
     Active Substance: CARVEDILOL
  6. CLONIDINE. [Concomitant]
     Active Substance: CLONIDINE
  7. AMLODIPINE [Concomitant]
     Active Substance: AMLODIPINE BESYLATE
  8. POLYETHGLYCOL POWDER [Concomitant]
  9. DOCQLACE [Concomitant]
     Active Substance: DOCUSATE SODIUM
  10. LATANOPROST. [Concomitant]
     Active Substance: LATANOPROST
  11. ASPIRIN. [Concomitant]
     Active Substance: ASPIRIN
  12. SENNA [Concomitant]
     Active Substance: SENNA LEAF\SENNOSIDES\SENNOSIDES A AND B
  13. VITAMIN D [Concomitant]
     Active Substance: CHOLECALCIFEROL
  14. HYDROCLOROTHIAZIDE [Suspect]
     Active Substance: HYDROCHLOROTHIAZIDE
     Indication: HYPERTENSION
     Route: 048
  15. LISINOPRIL. [Suspect]
     Active Substance: LISINOPRIL
  16. NOVOLOG [Concomitant]
     Active Substance: INSULIN ASPART
  17. ROLAIDS [Concomitant]
     Active Substance: CALCIUM CARBONATE\MAGNESIUM HYDROXIDE

REACTIONS (3)
  - Pancreatitis [None]
  - Renal disorder [None]
  - Multiple organ dysfunction syndrome [None]
